FAERS Safety Report 6897052-6 (Version None)
Quarter: 2010Q3

REPORT INFORMATION
  Report Type: 
  Country: None (occurrence: None)
  Receive Date: 20100802
  Receipt Date: 20100730
  Transmission Date: 20110219
  Serious: Yes (Hospitalization)
  Sender: FDA-Public Use
  Company Number: IT-MERCK-1006ITA00039

PATIENT
  Age: 80 Year
  Sex: Male

DRUGS (3)
  1. MODURETIC 5-50 [Suspect]
     Indication: HYPERTENSION
     Route: 048
     Dates: start: 20080606, end: 20080606
  2. ASPIRIN [Concomitant]
     Route: 048
  3. LOPERAMIDE HYDROCHLORIDE [Concomitant]
     Indication: DIARRHOEA
     Route: 065
     Dates: start: 20100602, end: 20100604

REACTIONS (3)
  - DYSSTASIA [None]
  - HYPOTENSION [None]
  - PRESYNCOPE [None]
